FAERS Safety Report 4947837-8 (Version None)
Quarter: 2006Q1

REPORT INFORMATION
  Report Type: 
  Country: None (occurrence: None)
  Receive Date: 20060317
  Receipt Date: 20060317
  Transmission Date: 20060701
  Serious: Yes (Life-Threatening, Hospitalization, Disabling)
  Sender: FDA-Public Use
  Company Number: None

PATIENT
  Age: 34 Year
  Sex: Female
  Weight: 63.5036 kg

DRUGS (2)
  1. BENZOCAINE -HURRICAINE-  20%    BEUTLICH [Suspect]
     Indication: INTUBATION COMPLICATION
     Dosage: OROPHARINGEAL
     Route: 049
     Dates: start: 20060125, end: 20060127
  2. XYLOCAINE VISCOUS [Suspect]
     Indication: INTUBATION COMPLICATION
     Dosage: OROPHARINGEAL
     Route: 049
     Dates: start: 20060125, end: 20060127

REACTIONS (4)
  - BLOOD METHAEMOGLOBIN PRESENT [None]
  - CYANOSIS [None]
  - DYSPNOEA [None]
  - OXYGEN SATURATION DECREASED [None]
